FAERS Safety Report 6313675-7 (Version None)
Quarter: 2009Q3

REPORT INFORMATION
  Report Type: 
  Country: None (occurrence: None)
  Receive Date: 20090817
  Receipt Date: 20090817
  Transmission Date: 20100115
  Serious: Yes (Hospitalization)
  Sender: FDA-Public Use
  Company Number: None

PATIENT
  Age: 62 Year
  Sex: Male

DRUGS (2)
  1. SIMVASTATIN [Suspect]
     Dosage: 80 MG EVERY DAY PO
     Route: 048
     Dates: start: 20080610, end: 20090808
  2. GEMFIBROZIL [Suspect]
     Dosage: 600 MG BID PO
     Route: 048
     Dates: start: 20090702, end: 20090808

REACTIONS (4)
  - BLOOD CREATININE INCREASED [None]
  - BLOOD UREA INCREASED [None]
  - HEPATIC ENZYME INCREASED [None]
  - RHABDOMYOLYSIS [None]
